FAERS Safety Report 15627892 (Version 2)
Quarter: 2018Q4

REPORT INFORMATION
  Report Type: Spontaneous
  Country: NL (occurrence: NL)
  Receive Date: 20181116
  Receipt Date: 20181129
  Transmission Date: 20190205
  Serious: Yes (Hospitalization, Other)
  Sender: FDA-Public Use
  Company Number: NL-JNJFOC-20170911434

PATIENT

DRUGS (3)
  1. INFLIXIMAB RECOMBINANT [Suspect]
     Active Substance: INFLIXIMAB
     Indication: COLITIS ULCERATIVE
     Dosage: PARENT^S DOSING
     Route: 064
  2. INFLIXIMAB RECOMBINANT [Suspect]
     Active Substance: INFLIXIMAB
     Indication: CROHN^S DISEASE
     Dosage: PARENT^S DOSING
     Route: 064
  3. INFLIXIMAB RECOMBINANT [Suspect]
     Active Substance: INFLIXIMAB
     Indication: INFLAMMATORY BOWEL DISEASE
     Dosage: PARENT^S DOSING
     Route: 064

REACTIONS (18)
  - Impetigo [Unknown]
  - Growth failure [Unknown]
  - Urinary tract infection [Unknown]
  - Furuncle [Unknown]
  - Otitis media acute [Unknown]
  - Cystic fibrosis [Unknown]
  - Small for dates baby [Unknown]
  - Staphylococcal skin infection [Unknown]
  - Alpha tumour necrosis factor increased [Unknown]
  - Exposure via breast milk [Unknown]
  - Eczema [Unknown]
  - Premature baby [Unknown]
  - Respiratory syncytial virus infection [Unknown]
  - Paronychia [Unknown]
  - Foetal exposure during pregnancy [Recovered/Resolved]
  - Low birth weight baby [Unknown]
  - Upper respiratory tract infection [Unknown]
  - Localised infection [Unknown]
